FAERS Safety Report 10742629 (Version 1)
Quarter: 2015Q1

REPORT INFORMATION
  Report Type: Spontaneous
  Country: DE (occurrence: DE)
  Receive Date: 20150127
  Receipt Date: 20150127
  Transmission Date: 20150721
  Serious: Yes (Congenital Anomaly, Other)
  Sender: FDA-Public Use
  Company Number: DE-TEVA-535531GER

PATIENT
  Age: 1 Day
  Sex: Male

DRUGS (3)
  1. AMITRIPTYLINE [Suspect]
     Active Substance: AMITRIPTYLINE
     Indication: DEPRESSION
     Dosage: 10 MILLIGRAM DAILY;
     Route: 064
     Dates: start: 20130907, end: 20140608
  2. OLANZAPINE. [Suspect]
     Active Substance: OLANZAPINE
     Indication: SLEEP DISORDER
     Dosage: 2.5 MILLIGRAM DAILY;
     Route: 064
  3. ASS 100 [Concomitant]
     Active Substance: ASPIRIN
     Indication: ULTRASOUND DOPPLER ABNORMAL
     Dosage: 100 MILLIGRAM DAILY;
     Route: 064
     Dates: start: 20140130, end: 20140513

REACTIONS (3)
  - Cleft lip [Unknown]
  - Small for dates baby [Unknown]
  - Foetal exposure during pregnancy [Unknown]

NARRATIVE: CASE EVENT DATE: 20140608
